FAERS Safety Report 18627259 (Version 17)
Quarter: 2022Q1

REPORT INFORMATION
  Report Type: Report from Study
  Country: AU (occurrence: AU)
  Receive Date: 20201217
  Receipt Date: 20220308
  Transmission Date: 20220423
  Serious: Yes (Hospitalization)
  Sender: FDA-Public Use
  Company Number: AU-GLAXOSMITHKLINE-AU2020GSK244782

PATIENT
  Age: 80 Year
  Sex: Female
  Weight: 66.9 kg

DRUGS (25)
  1. BELANTAMAB MAFODOTIN [Suspect]
     Active Substance: BELANTAMAB MAFODOTIN
     Indication: Plasma cell myeloma
     Dosage: CYC
     Route: 042
     Dates: start: 20201203
  2. ACETAMINOPHEN [Concomitant]
     Active Substance: ACETAMINOPHEN
     Indication: Analgesic therapy
     Dosage: 1 G
     Route: 048
     Dates: start: 20201203
  3. ACETAMINOPHEN [Concomitant]
     Active Substance: ACETAMINOPHEN
     Indication: Pyrexia
     Dosage: 1 G, PRN
     Route: 048
     Dates: start: 20201119
  4. ACETAMINOPHEN [Concomitant]
     Active Substance: ACETAMINOPHEN
     Indication: Arthralgia
  5. OXYCODONE [Concomitant]
     Active Substance: OXYCODONE
     Indication: Analgesic therapy
     Dosage: 5 MG, PRN
     Route: 048
     Dates: start: 20201203, end: 20201206
  6. PIPERACILLIN AND TAZOBACTAM [Concomitant]
     Active Substance: PIPERACILLIN SODIUM\TAZOBACTAM SODIUM
     Indication: Cytokine release syndrome
     Dosage: 4.5 G, QD
     Route: 042
     Dates: start: 20201203, end: 20201206
  7. PIPERACILLIN AND TAZOBACTAM [Concomitant]
     Active Substance: PIPERACILLIN SODIUM\TAZOBACTAM SODIUM
     Indication: Pyrexia
     Dosage: 4.5 G, TID
     Route: 042
     Dates: start: 20201214, end: 20201216
  8. PERINDOPRIL [Concomitant]
     Active Substance: PERINDOPRIL
     Indication: Hypertension
     Dosage: 5 MG, QD
     Route: 048
     Dates: start: 201112
  9. FEXOFENADINE [Concomitant]
     Active Substance: FEXOFENADINE HYDROCHLORIDE
     Indication: Seasonal allergy
     Dosage: 180 MG, PRN
     Route: 048
     Dates: start: 2020
  10. HYDROCORTISONE [Concomitant]
     Active Substance: HYDROCORTISONE
     Indication: Cytokine release syndrome
     Dosage: 100 MG, QD
     Route: 042
     Dates: start: 20201203
  11. LORATADINE [Concomitant]
     Active Substance: LORATADINE
     Indication: Prophylaxis
     Dosage: 10 MG, QD
     Route: 048
     Dates: start: 20201203
  12. MAXOLON [Concomitant]
     Active Substance: METOCLOPRAMIDE HYDROCHLORIDE
     Indication: Prophylaxis
     Dosage: 10 MG, QD
     Route: 048
     Dates: start: 20201203
  13. ONDANSETRON [Concomitant]
     Active Substance: ONDANSETRON
     Indication: Cytokine release syndrome
     Dosage: 8 MG, QD
     Route: 042
     Dates: start: 20201203, end: 20201203
  14. ONDANSETRON [Concomitant]
     Active Substance: ONDANSETRON
     Indication: Prophylaxis
     Dosage: 4 MG, ONCE
     Route: 048
     Dates: start: 20201208, end: 20201208
  15. ENOXAPARIN SODIUM [Concomitant]
     Active Substance: ENOXAPARIN SODIUM
     Indication: Prophylaxis
     Dosage: 40 MG, QD
     Route: 058
     Dates: start: 20201209, end: 20201209
  16. MAGNESIUM [Concomitant]
     Active Substance: MAGNESIUM
     Indication: Prophylaxis
     Dosage: 2 DF, ONCE
     Route: 048
     Dates: start: 20201206, end: 20201206
  17. MAGNESIUM [Concomitant]
     Active Substance: MAGNESIUM
     Dosage: 10 MMOL, ONCE
     Route: 042
     Dates: start: 20201209, end: 20201209
  18. ASPIRIN [Concomitant]
     Active Substance: ASPIRIN
     Indication: Prophylaxis
     Dosage: 300 MG, ONCE
     Route: 048
     Dates: start: 20201209, end: 20201209
  19. ASPIRIN [Concomitant]
     Active Substance: ASPIRIN
     Dosage: 100 MG, ONCE
     Route: 048
     Dates: start: 20201210, end: 20201210
  20. UNSPECIFIED INGREDIENT [Concomitant]
     Active Substance: UNSPECIFIED INGREDIENT
     Indication: Hypophosphataemia
     Dosage: 1000 MG, ONCE
     Route: 048
     Dates: start: 20201206, end: 20201206
  21. NILSTAT [Concomitant]
     Active Substance: NYSTATIN
     Indication: Oral candidiasis
     Dosage: 1 ML, QD
     Route: 048
     Dates: start: 20201208, end: 20201210
  22. HYALURONATE SODIUM [Concomitant]
     Active Substance: HYALURONATE SODIUM
     Indication: Prophylaxis
     Dosage: 1 DROP,QID
     Route: 047
     Dates: start: 20201203
  23. BACTRIM [Concomitant]
     Active Substance: SULFAMETHOXAZOLE\TRIMETHOPRIM
     Indication: Infection prophylaxis
     Dosage: 1 DF, 2 TIMES PER WEEK
     Route: 048
     Dates: start: 2015
  24. VALACYCLOVIR HYDROCHLORIDE [Concomitant]
     Active Substance: VALACYCLOVIR HYDROCHLORIDE
     Indication: Infection prophylaxis
     Dosage: 500 MG, QD
     Route: 048
     Dates: start: 2020
  25. FILGRASTIM [Concomitant]
     Active Substance: FILGRASTIM
     Indication: Neutropenia
     Dosage: 300 ?MOL, WE
     Route: 058
     Dates: start: 20210107

REACTIONS (2)
  - Atrial fibrillation [Recovered/Resolved]
  - Chest pain [Recovered/Resolved]

NARRATIVE: CASE EVENT DATE: 20201208
